FAERS Safety Report 7379997-6 (Version None)
Quarter: 2011Q1

REPORT INFORMATION
  Report Type: 
  Country: None (occurrence: None)
  Receive Date: 20110329
  Receipt Date: 20110321
  Transmission Date: 20110831
  Serious: Yes (Other)
  Sender: FDA-Public Use
  Company Number: US-AMGEN-USASP2011007623

PATIENT
  Age: 43 Year
  Sex: Female
  Weight: 137.42 kg

DRUGS (1)
  1. ENBREL [Suspect]
     Indication: RHEUMATOID ARTHRITIS
     Dosage: 50 MG, QWK
     Route: 058
     Dates: start: 20110104, end: 20110304

REACTIONS (4)
  - NERVOUSNESS [None]
  - FLUSHING [None]
  - BODY TEMPERATURE INCREASED [None]
  - PALPITATIONS [None]
